FAERS Safety Report 7064911-3 (Version None)
Quarter: 2010Q4

REPORT INFORMATION
  Report Type: 
  Country: None (occurrence: None)
  Receive Date: 20101022
  Receipt Date: 20101022
  Transmission Date: 20110411
  Serious: Yes (Hospitalization)
  Sender: FDA-Public Use
  Company Number: None

PATIENT
  Age: 64 Year
  Sex: Male

DRUGS (3)
  1. IFOSFAMIDE [Suspect]
     Indication: LYMPHOMA
     Dosage: 5GM/M2 ONCE IV DRIP
     Route: 041
     Dates: start: 20091119, end: 20091120
  2. CARBOPLATIN [Concomitant]
  3. ETOPOSIDE [Concomitant]

REACTIONS (5)
  - AGITATION [None]
  - DYSKINESIA [None]
  - ENCEPHALOPATHY [None]
  - INCONTINENCE [None]
  - SOMNOLENCE [None]
